FAERS Safety Report 6430993-2 (Version None)
Quarter: 2009Q4

REPORT INFORMATION
  Report Type: 
  Country: None (occurrence: None)
  Receive Date: 20091106
  Receipt Date: 20091023
  Transmission Date: 20100525
  Serious: Yes (Other)
  Sender: FDA-Public Use
  Company Number: JP-GENENTECH-288205

PATIENT
  Age: 43 Year
  Sex: Female

DRUGS (2)
  1. LUCENTIS [Suspect]
     Indication: MYOPIA
     Dosage: 0.05 ML, UNK
     Route: 031
     Dates: start: 20090702
  2. LEVOFLOXACIN [Concomitant]
     Indication: DRUG USE FOR UNKNOWN INDICATION

REACTIONS (1)
  - RETINAL TEAR [None]
